FAERS Safety Report 6896748-X (Version None)
Quarter: 2010Q3

REPORT INFORMATION
  Report Type: 
  Country: None (occurrence: None)
  Receive Date: 20100729
  Receipt Date: 20100719
  Transmission Date: 20110219
  Serious: Yes (Hospitalization)
  Sender: FDA-Public Use
  Company Number: 7005729

PATIENT
  Age: 60 Year
  Sex: Male

DRUGS (10)
  1. REBIF [Suspect]
     Indication: MULTIPLE SCLEROSIS
     Dosage: 22 MCG, 3 IN 1 WK, SUBCUTANEOUS
     Route: 058
     Dates: start: 20100416
  2. LYRICA [Concomitant]
  3. CONDROFLEX (GLUCOSAMINE) W/ CHRONDROITIN SULFATE) [Concomitant]
  4. EXODUS (NICOTINE) [Concomitant]
  5. VALIUM [Concomitant]
  6. OMEPRAZOLE [Concomitant]
  7. CENTRUM [Concomitant]
  8. SERTRALINE HYDROCHLORIDE [Concomitant]
  9. TRAMAL (TRAMADOL) (TRAMADOL HYDROCHLORIDE) [Concomitant]
  10. FLAVONID (ALL OTHER THERAPEUTIC PRODUCTS) [Concomitant]

REACTIONS (4)
  - DERMATITIS [None]
  - ERYSIPELAS [None]
  - NOSOCOMIAL INFECTION [None]
  - WOUND COMPLICATION [None]
